FAERS Safety Report 5737661-0 (Version None)
Quarter: 2008Q2

REPORT INFORMATION
  Report Type: 
  Country: None (occurrence: None)
  Receive Date: 20080513
  Receipt Date: 20080513
  Transmission Date: 20081010
  Serious: Yes (Disabling)
  Sender: FDA-Public Use
  Company Number: None

PATIENT
  Age: 87 Year
  Sex: Male
  Weight: 70.3075 kg

DRUGS (2)
  1. DIGITEK 0.125 MG MYLAN BERTEK [Suspect]
     Indication: ARRHYTHMIA
     Dosage: 0.125 -1 TABLET-EVERY OTHER DAY PO, 0.125 -2 TABLETS- ALTERNATE DAY, PO
     Route: 048
     Dates: start: 20080206, end: 20080510
  2. DIGITEK 0.125 MG MYLAN BERTEK [Suspect]
     Indication: CARDIAC FAILURE CONGESTIVE
     Dosage: 0.125 -1 TABLET-EVERY OTHER DAY PO, 0.125 -2 TABLETS- ALTERNATE DAY, PO
     Route: 048
     Dates: start: 20080206, end: 20080510

REACTIONS (5)
  - ASTHENIA [None]
  - FATIGUE [None]
  - INCORRECT DOSE ADMINISTERED [None]
  - PHARMACEUTICAL PRODUCT COMPLAINT [None]
  - SOMNOLENCE [None]
